FAERS Safety Report 5713035-3 (Version None)
Quarter: 2008Q2

REPORT INFORMATION
  Report Type: 
  Country: None (occurrence: None)
  Receive Date: 20080422
  Receipt Date: 20080418
  Transmission Date: 20081010
  Serious: Yes (Life-Threatening)
  Sender: FDA-Public Use
  Company Number: FR-ASTRAZENECA-2008CG00607

PATIENT
  Age: 26 Year
  Sex: Female
  Weight: 69 kg

DRUGS (4)
  1. XYLOCAINE [Suspect]
     Indication: INDUCTION OF ANAESTHESIA
  2. ADRENALINE RENAUDIN [Suspect]
     Indication: INDUCTION OF ANAESTHESIA
     Route: 042
     Dates: start: 20071012, end: 20071012
  3. DIPRIVAN [Concomitant]
     Indication: INDUCTION OF ANAESTHESIA
     Dates: start: 20071012, end: 20071012
  4. SUFENTA [Concomitant]
     Indication: INDUCTION OF ANAESTHESIA
     Dates: start: 20071012, end: 20071012

REACTIONS (6)
  - BLOOD PRESSURE INCREASED [None]
  - EJECTION FRACTION DECREASED [None]
  - MEDICATION ERROR [None]
  - TACHYCARDIA [None]
  - VENTRICULAR HYPOKINESIA [None]
  - WRONG DRUG ADMINISTERED [None]
